FAERS Safety Report 6436680-9 (Version None)
Quarter: 2009Q4

REPORT INFORMATION
  Report Type: 
  Country: None (occurrence: None)
  Receive Date: 20091111
  Receipt Date: 20091030
  Transmission Date: 20100525
  Serious: Yes (Hospitalization)
  Sender: FDA-Public Use
  Company Number: FR-PFIZER INC-2009292464

PATIENT
  Age: 84 Year
  Sex: Female

DRUGS (4)
  1. ATARAX [Suspect]
     Indication: ANXIETY
     Dosage: 25 MG, DAILY
     Route: 048
     Dates: end: 20081217
  2. SERESTA [Suspect]
     Indication: ANXIETY
     Dosage: 50 MG, 3X/DAY
     Route: 048
     Dates: end: 20081217
  3. HAVLANE [Suspect]
     Dosage: 1 DF, 1X/DAY
     Route: 048
     Dates: end: 20081217
  4. LANZOR [Suspect]
     Dosage: 30 MG, 1X/DAY
     Route: 048
     Dates: end: 20081217

REACTIONS (5)
  - CONFUSIONAL STATE [None]
  - FALL [None]
  - HYPONATRAEMIA [None]
  - MALNUTRITION [None]
  - WEIGHT DECREASED [None]
